FAERS Safety Report 26019043 (Version 1)
Quarter: 2025Q4

REPORT INFORMATION
  Report Type: Spontaneous
  Country: US (occurrence: US)
  Receive Date: 20251110
  Receipt Date: 20251110
  Transmission Date: 20260118
  Serious: Yes (Hospitalization)
  Sender: ROCHE
  Company Number: US-ROCHE-10000430604

PATIENT
  Sex: Male

DRUGS (4)
  1. HEMLIBRA [Suspect]
     Active Substance: EMICIZUMAB-KXWH
     Indication: Factor VIII deficiency
     Dosage: STRENGTH: 105MG/ 0.7ML
     Route: 058
     Dates: start: 202508
  2. HEMLIBRA [Suspect]
     Active Substance: EMICIZUMAB-KXWH
     Dosage: STRENGTH: 60MG/ 0.4ML
     Route: 058
     Dates: start: 20250916
  3. NOVOSEVEN RT MP [Concomitant]
  4. NOVOSEVEN RT MP [Concomitant]

REACTIONS (1)
  - Aortic aneurysm [Unknown]
